FAERS Safety Report 7226503-2 (Version None)
Quarter: 2011Q1

REPORT INFORMATION
  Report Type: 
  Country: None (occurrence: None)
  Receive Date: 20110107
  Receipt Date: 20110107
  Transmission Date: 20110831
  Serious: No
  Sender: FDA-Public Use
  Company Number: None

PATIENT
  Sex: Female
  Weight: 99.7913 kg

DRUGS (1)
  1. ICY HOT LONG LASTING PAIN RELIEF CHATTEM INC [Suspect]
     Indication: MUSCLE SPASMS
     Dosage: MAXIMUM STRENGH 3-4 TIMES DAILY TOP (1 TIME ONLY)
     Route: 061
     Dates: start: 20100106, end: 20100106

REACTIONS (2)
  - APPLICATION SITE ERYTHEMA [None]
  - APPLICATION SITE PAIN [None]
